FAERS Safety Report 9422861 (Version 3)
Quarter: 2013Q3

REPORT INFORMATION
  Report Type: Spontaneous
  Country: US (occurrence: US)
  Receive Date: 20130726
  Receipt Date: 20130904
  Transmission Date: 20140515
  Serious: Yes (Other)
  Sender: FDA-Public Use
  Company Number: US-ROCHE-1223997

PATIENT
  Sex: Female

DRUGS (4)
  1. PEGASYS [Suspect]
     Indication: CHRONIC HEPATITIS C
     Route: 058
     Dates: start: 20130503
  2. RIBAVIRIN [Suspect]
     Indication: CHRONIC HEPATITIS C
     Route: 048
     Dates: start: 20130503
  3. RIBAVIRIN [Suspect]
     Route: 048
  4. RIBAVIRIN [Suspect]
     Route: 048

REACTIONS (15)
  - Ear haemorrhage [Unknown]
  - Dyspnoea [Unknown]
  - Erythema [Unknown]
  - Erythema [Unknown]
  - Feeling hot [Unknown]
  - Drug dose omission [Unknown]
  - Anaemia [Unknown]
  - Contusion [Unknown]
  - Rash [Unknown]
  - Pruritus [Unknown]
  - Hallucination [Unknown]
  - Confusional state [Unknown]
  - Emotional distress [Unknown]
  - Paranoia [Unknown]
  - Crying [Unknown]
